FAERS Safety Report 14313804 (Version 1)
Quarter: 2017Q4

REPORT INFORMATION
  Report Type: Spontaneous
  Country: US (occurrence: US)
  Receive Date: 20171221
  Receipt Date: 20171221
  Transmission Date: 20180321
  Serious: Yes (Other)
  Sender: FDA-Public Use
  Company Number: US-LEXICON PHARMACEUTICALS, INC-17-1606-01303

PATIENT
  Sex: Female

DRUGS (10)
  1. CENTRUM [Concomitant]
     Active Substance: VITAMINS
  2. DIPHENHYDRAM [Concomitant]
  3. VITAMIN D3 [Concomitant]
     Active Substance: CHOLECALCIFEROL
  4. IMODIUM A-D [Concomitant]
     Active Substance: LOPERAMIDE HYDROCHLORIDE
  5. ESTRADIOL. [Concomitant]
     Active Substance: ESTRADIOL
  6. FOLIC ACID. [Concomitant]
     Active Substance: FOLIC ACID
  7. IBUPROFEN. [Concomitant]
     Active Substance: IBUPROFEN
  8. SANDOSTATIN [Concomitant]
     Active Substance: OCTREOTIDE ACETATE
  9. TELOTRISTAT ETHYL [Suspect]
     Active Substance: TELOTRISTAT ETHYL
     Indication: CARCINOID TUMOUR OF THE DUODENUM
     Route: 048
     Dates: start: 20171117
  10. PROPRANOLOL [Concomitant]
     Active Substance: PROPRANOLOL HYDROCHLORIDE

REACTIONS (4)
  - Muscular weakness [Unknown]
  - Glossodynia [Unknown]
  - Short-bowel syndrome [Unknown]
  - Night sweats [Unknown]

NARRATIVE: CASE EVENT DATE: 2017
